FAERS Safety Report 17727446 (Version 2)
Quarter: 2020Q2

REPORT INFORMATION
  Report Type: Report from Study
  Country: None (occurrence: IT)
  Receive Date: 20200430
  Receipt Date: 20200504
  Transmission Date: 20200714
  Serious: Yes (Hospitalization, Other)
  Sender: FDA-Public Use
  Company Number: IT-ABBVIE-20K-083-3385903-00

PATIENT
  Age: 67 Year
  Sex: Male

DRUGS (1)
  1. DUODOPA [Suspect]
     Active Substance: CARBIDOPA\LEVODOPA
     Indication: PARKINSON^S DISEASE
     Dosage: MD: 13.2+3, CR: 3.3, ED: 2.8
     Route: 050
     Dates: start: 20170717

REACTIONS (1)
  - Coronavirus infection [Unknown]

NARRATIVE: CASE EVENT DATE: 202003
